FAERS Safety Report 7315409-6 (Version None)
Quarter: 2011Q1

REPORT INFORMATION
  Report Type: 
  Country: None (occurrence: None)
  Receive Date: 20110225
  Receipt Date: 20110224
  Transmission Date: 20110831
  Serious: Yes (Hospitalization)
  Sender: FDA-Public Use
  Company Number: A0914964A

PATIENT
  Sex: Female

DRUGS (10)
  1. ESCITALOPRAM OXALATE [Suspect]
     Indication: DEPRESSION
  2. METFORMIN HCL [Concomitant]
  3. METOPROLOL [Suspect]
     Indication: PRODUCT USED FOR UNKNOWN INDICATION
  4. LORAZEPAM [Suspect]
     Indication: PRODUCT USED FOR UNKNOWN INDICATION
  5. APIXABAN [Concomitant]
     Dosage: 5MG TWICE PER DAY
  6. EZETROL [Concomitant]
  7. WARFARIN SODIUM [Concomitant]
     Dosage: 7MG PER DAY
  8. PROPAFENONE [Suspect]
     Indication: PRODUCT USED FOR UNKNOWN INDICATION
  9. CLONAZEPAM [Suspect]
     Indication: PRODUCT USED FOR UNKNOWN INDICATION
  10. GLICLAZIDE [Concomitant]

REACTIONS (7)
  - DEPRESSED LEVEL OF CONSCIOUSNESS [None]
  - HYPOXIA [None]
  - ENDOTRACHEAL INTUBATION [None]
  - BLOOD PH DECREASED [None]
  - OVERDOSE [None]
  - HYPOTENSION [None]
  - SUICIDAL IDEATION [None]
